FAERS Safety Report 14680387 (Version 1)
Quarter: 2018Q1

REPORT INFORMATION
  Report Type: Spontaneous
  Country: DE (occurrence: DE)
  Receive Date: 20180326
  Receipt Date: 20180326
  Transmission Date: 20180509
  Serious: Yes (Other)
  Sender: FDA-Public Use
  Company Number: PHHY2018DE052508

PATIENT
  Age: 74 Year
  Sex: Female

DRUGS (1)
  1. ANASTROZOL ? 1 A PHARMA [Suspect]
     Active Substance: ANASTROZOLE
     Indication: BREAST CANCER
     Dosage: 1 MG, QD
     Route: 065
     Dates: start: 201711, end: 201801

REACTIONS (1)
  - Muscle rupture [Unknown]

NARRATIVE: CASE EVENT DATE: 201802
